FAERS Safety Report 10168754 (Version 1)
Quarter: 2014Q2

REPORT INFORMATION
  Report Type: Spontaneous
  Country: US (occurrence: US)
  Receive Date: 20140513
  Receipt Date: 20140513
  Transmission Date: 20141212
  Serious: No
  Sender: FDA-Public Use
  Company Number: US-BAYER-2014-056467

PATIENT
  Age: 80 Year
  Sex: Female

DRUGS (1)
  1. CIPRO [Suspect]
     Indication: URINARY TRACT INFECTION
     Dosage: 500 MG, BID
     Dates: start: 201404

REACTIONS (5)
  - Unevaluable event [None]
  - Nausea [None]
  - Diarrhoea [None]
  - Dizziness [None]
  - Epigastric discomfort [None]
